FAERS Safety Report 22367683 (Version 1)
Quarter: 2023Q2

REPORT INFORMATION
  Report Type: Spontaneous
  Country: None (occurrence: GB)
  Receive Date: 20230525
  Receipt Date: 20230525
  Transmission Date: 20230722
  Serious: Yes (Disabling, Other)
  Sender: FDA-Public Use
  Company Number: GB-B.Braun Medical Inc.-2141999

PATIENT
  Age: 74 Year
  Sex: Male

DRUGS (11)
  1. DEXTROSE MONOHYDRATE\THEOPHYLLINE\THEOPHYLLINE ANHYDROUS [Suspect]
     Active Substance: DEXTROSE MONOHYDRATE\THEOPHYLLINE\THEOPHYLLINE ANHYDROUS
  2. LACTULOSE [Suspect]
     Active Substance: LACTULOSE
  3. ACETAMINOPHEN [Suspect]
     Active Substance: ACETAMINOPHEN
  4. WARFARIN [Suspect]
     Active Substance: WARFARIN
  5. DIGOXIN [Suspect]
     Active Substance: DIGOXIN
  6. ALBUTEROL [Suspect]
     Active Substance: ALBUTEROL
  7. BENDROFLUMETHIAZIDE [Suspect]
     Active Substance: BENDROFLUMETHIAZIDE
  8. ATORVASTATIN CALCIUM [Suspect]
     Active Substance: ATORVASTATIN CALCIUM
  9. ISOSORBIDE [Suspect]
     Active Substance: ISOSORBIDE
  10. AMLODIPINE [Suspect]
     Active Substance: AMLODIPINE BESYLATE
  11. TRANDOLAPRIL [Suspect]
     Active Substance: TRANDOLAPRIL

REACTIONS (3)
  - Depression suicidal [Unknown]
  - Disability [Unknown]
  - Emotional distress [Unknown]
